FAERS Safety Report 12265717 (Version 4)
Quarter: 2016Q4

REPORT INFORMATION
  Report Type: Spontaneous
  Country: US (occurrence: US)
  Receive Date: 20160413
  Receipt Date: 20161110
  Transmission Date: 20170207
  Serious: Yes (Hospitalization)
  Sender: FDA-Public Use
  Company Number: US-ACTELION-A-US2016-134300

PATIENT
  Age: 52 Year
  Sex: Female

DRUGS (3)
  1. TRACLEER [Suspect]
     Active Substance: BOSENTAN
     Indication: PULMONARY ARTERIAL HYPERTENSION
     Dosage: 125 MG, BID
     Route: 048
     Dates: start: 20080516
  2. REMODULIN [Concomitant]
     Active Substance: TREPROSTINIL
  3. WARFARIN [Concomitant]
     Active Substance: WARFARIN

REACTIONS (13)
  - Device breakage [Recovered/Resolved]
  - Dyspnoea [Recovered/Resolved]
  - Device related infection [Unknown]
  - Device leakage [Recovered/Resolved]
  - Infusion site swelling [Unknown]
  - Infusion site discharge [Unknown]
  - Catheter management [Recovered/Resolved]
  - Device occlusion [Recovered/Resolved]
  - Device issue [Recovered/Resolved]
  - Infusion site erythema [Unknown]
  - Feeling abnormal [Unknown]
  - Presyncope [Recovered/Resolved]
  - Dyspnoea exertional [Unknown]
